FAERS Safety Report 13477526 (Version 1)
Quarter: 2017Q2

REPORT INFORMATION
  Report Type: Spontaneous
  Country: US (occurrence: US)
  Receive Date: 20170425
  Receipt Date: 20170425
  Transmission Date: 20170830
  Serious: No
  Sender: FDA-Public Use
  Company Number: US-JNJFOC-20170418917

PATIENT
  Sex: Female

DRUGS (2)
  1. PEPCID AC ORIGINAL STRENGTH [Suspect]
     Active Substance: FAMOTIDINE
     Indication: FLATULENCE
     Dosage: 2 TABLET
     Route: 048
     Dates: start: 20170416
  2. PEPCID AC ORIGINAL STRENGTH [Suspect]
     Active Substance: FAMOTIDINE
     Indication: ABDOMINAL PAIN UPPER
     Dosage: 2 TABLET
     Route: 048
     Dates: start: 20170416

REACTIONS (1)
  - Drug ineffective for unapproved indication [Unknown]
